FAERS Safety Report 17086969 (Version 3)
Quarter: 2020Q1

REPORT INFORMATION
  Report Type: Spontaneous
  Country: US (occurrence: US)
  Receive Date: 20191128
  Receipt Date: 20200128
  Transmission Date: 20200409
  Serious: Yes (Hospitalization, Other)
  Sender: FDA-Public Use
  Company Number: US-TERSERA THERAPEUTICS LLC-2019TRS002691

PATIENT

DRUGS (3)
  1. PRIALT [Suspect]
     Active Substance: ZICONOTIDE ACETATE
     Indication: CAUDA EQUINA SYNDROME
     Dosage: UNK
     Route: 037
     Dates: start: 20071102
  2. PRIALT [Suspect]
     Active Substance: ZICONOTIDE ACETATE
     Indication: BACK PAIN
  3. PRIALT [Suspect]
     Active Substance: ZICONOTIDE ACETATE
     Indication: NEURALGIA
     Dosage: 11 MCG, QD
     Route: 037
     Dates: end: 20191124

REACTIONS (1)
  - Implant site cellulitis [Not Recovered/Not Resolved]

NARRATIVE: CASE EVENT DATE: 20191121
